FAERS Safety Report 10994821 (Version 1)
Quarter: 2015Q2

REPORT INFORMATION
  Report Type: Spontaneous
  Country: NL (occurrence: NL)
  Receive Date: 20150407
  Receipt Date: 20150407
  Transmission Date: 20150821
  Serious: Yes (Other)
  Sender: FDA-Public Use
  Company Number: NL-JNJFOC-20150320320

PATIENT

DRUGS (3)
  1. CETIRIZINE HYDROCHLORIDE. [Suspect]
     Active Substance: CETIRIZINE HYDROCHLORIDE
     Indication: PSORIASIS
     Route: 048
  2. DIMETHYL FUMARATE [Suspect]
     Active Substance: DIMETHYL FUMARATE
     Indication: PSORIASIS
     Route: 065
  3. CETIRIZINE HYDROCHLORIDE. [Suspect]
     Active Substance: CETIRIZINE HYDROCHLORIDE
     Route: 048

REACTIONS (14)
  - Oedema peripheral [Unknown]
  - Influenza like illness [Unknown]
  - Arrhythmia [Unknown]
  - Pruritus [Unknown]
  - Proteinuria [Unknown]
  - Flushing [Unknown]
  - Fatigue [Unknown]
  - Dizziness [Unknown]
  - Eosinophilia [Unknown]
  - Myocardial infarction [Unknown]
  - Gastrointestinal disorder [Unknown]
  - Headache [Unknown]
  - Lymphopenia [Unknown]
  - Product use issue [Unknown]
